FAERS Safety Report 6697572-3 (Version None)
Quarter: 2010Q2

REPORT INFORMATION
  Report Type: 
  Country: None (occurrence: None)
  Receive Date: 20100426
  Receipt Date: 20090701
  Transmission Date: 20101027
  Serious: No
  Sender: FDA-Public Use
  Company Number: US-ABBOTT-09P-163-0583171-00

PATIENT
  Sex: Male
  Weight: 113.5 kg

DRUGS (4)
  1. AZMACORT [Suspect]
     Indication: ASTHMA
     Route: 055
     Dates: start: 19990101
  2. METOPROLOL [Concomitant]
     Indication: RENAL FAILURE
     Route: 048
  3. LOVASTATIN [Concomitant]
     Indication: BLOOD CHOLESTEROL INCREASED
     Route: 048
  4. PROAIR HFA [Concomitant]
     Indication: ASTHMA
     Dosage: ONE-TWO PUFFS
     Route: 055

REACTIONS (1)
  - ASTHMA [None]
